FAERS Safety Report 9221207 (Version 1)
Quarter: 2013Q2

REPORT INFORMATION
  Report Type: Spontaneous
  Country: US (occurrence: US)
  Receive Date: 20130410
  Receipt Date: 20130410
  Transmission Date: 20140414
  Serious: Yes (Hospitalization)
  Sender: FDA-Public Use
  Company Number: US-SUN PHARMACEUTICAL INDUSTRIES LTD-2013SUN00431

PATIENT
  Age: 65 Year
  Sex: Female

DRUGS (3)
  1. PROMETHAZINE HCL [Suspect]
     Indication: NAUSEA
     Dosage: 25 MG, 2-3 TIMES A DAY
     Route: 065
  2. DIPHENHYDRAMINE HYDROCHLORIDE [Suspect]
     Route: 042
  3. ANAESTHETICS, GENERAL [Suspect]
     Indication: LAPAROSCOPIC SURGERY

REACTIONS (2)
  - Restless legs syndrome [Recovered/Resolved]
  - Condition aggravated [None]
